FAERS Safety Report 24441038 (Version 2)
Quarter: 2024Q4

REPORT INFORMATION
  Report Type: Spontaneous
  Country: JP (occurrence: JP)
  Receive Date: 20241016
  Receipt Date: 20241017
  Transmission Date: 20250115
  Serious: No
  Sender: ROCHE
  Company Number: JP-CHUGAI-2023042086

PATIENT
  Age: 14 Year
  Sex: Male
  Weight: 50.0 kg

DRUGS (2)
  1. HEMLIBRA [Suspect]
     Active Substance: EMICIZUMAB-KXWH
     Indication: Haemophilia
     Dosage: UNK
     Route: 058
     Dates: start: 2023
  2. JIVI [Concomitant]
     Active Substance: DAMOCTOCOG ALFA PEGOL
     Dosage: UNK

REACTIONS (1)
  - Injury [Unknown]

NARRATIVE: CASE EVENT DATE: 20230101
